FAERS Safety Report 9172558 (Version 1)
Quarter: 2013Q1

REPORT INFORMATION
  Report Type: Spontaneous
  Country: US (occurrence: US)
  Receive Date: 20130319
  Receipt Date: 20130319
  Transmission Date: 20140127
  Serious: No
  Sender: FDA-Public Use
  Company Number: US-009507513-1303USA007511

PATIENT
  Sex: Female

DRUGS (7)
  1. RIBAVIRIN [Suspect]
     Indication: CHRONIC HEPATITIS C
     Dosage: 800 MG, QD
     Route: 048
     Dates: start: 20120703
  2. RIBAVIRIN [Suspect]
     Dosage: 400 MG, QD
     Route: 048
  3. RIBAVIRIN [Suspect]
     Dosage: 200 MG, QD
     Route: 048
  4. BOCEPREVIR [Suspect]
     Indication: CHRONIC HEPATITIS C
     Dosage: 800 MG, QD
     Route: 048
     Dates: start: 20120806
  5. BOCEPREVIR [Suspect]
     Dosage: 400 MG, QD
     Route: 048
  6. BOCEPREVIR [Suspect]
     Dosage: 200 MG, QD
     Route: 048
  7. PEGINTERFERON ALFA-2A [Suspect]
     Indication: CHRONIC HEPATITIS C
     Dosage: 180 MICROGRAM, QW
     Route: 058
     Dates: start: 20120703

REACTIONS (3)
  - Anaemia [Unknown]
  - Epistaxis [Recovered/Resolved]
  - White blood cell count decreased [Unknown]
